FAERS Safety Report 5962510-5 (Version None)
Quarter: 2008Q4

REPORT INFORMATION
  Report Type: 
  Country: None (occurrence: None)
  Receive Date: 20081121
  Receipt Date: 20081111
  Transmission Date: 20090506
  Serious: Yes (Hospitalization, Other)
  Sender: FDA-Public Use
  Company Number: US-PFIZER INC-2008094675

PATIENT
  Age: 29 Day
  Sex: Female
  Weight: 3.7 kg

DRUGS (5)
  1. PHENYTOIN [Suspect]
  2. AMPICILLIN [Interacting]
  3. CEFOTAXIME SODIUM [Interacting]
  4. PHENOBARBITAL TAB [Concomitant]
  5. CARBAMAZEPINE [Concomitant]

REACTIONS (10)
  - BLOOD PRESSURE INCREASED [None]
  - DEPRESSED LEVEL OF CONSCIOUSNESS [None]
  - DRUG INTERACTION [None]
  - DRUG TOXICITY [None]
  - HYPOTHERMIA [None]
  - ILEUS [None]
  - INCORRECT DOSE ADMINISTERED [None]
  - LETHARGY [None]
  - NYSTAGMUS [None]
  - STRABISMUS [None]
